FAERS Safety Report 9197905 (Version 1)
Quarter: 2013Q1

REPORT INFORMATION
  Report Type: Spontaneous
  Country: US (occurrence: US)
  Receive Date: 20130328
  Receipt Date: 20130328
  Transmission Date: 20140127
  Serious: No
  Sender: FDA-Public Use
  Company Number: US-PFIZER INC-2013097647

PATIENT
  Age: 73 Year
  Sex: Male

DRUGS (1)
  1. SUTENT [Suspect]
     Indication: SOFT TISSUE CANCER
     Dosage: 12.5 MG, UNK
     Dates: start: 20111214

REACTIONS (3)
  - Off label use [Unknown]
  - Disease progression [Unknown]
  - Soft tissue cancer [Unknown]
